FAERS Safety Report 4771584-9 (Version None)
Quarter: 2005Q3

REPORT INFORMATION
  Report Type: 
  Country: None (occurrence: None)
  Receive Date: 20050913
  Receipt Date: 20050913
  Transmission Date: 20060218
  Serious: Yes (Death)
  Sender: FDA-Public Use
  Company Number: None

PATIENT
  Sex: Male
  Weight: 19 kg

DRUGS (19)
  1. CYCLOPHOSPHAMIDE [Suspect]
     Indication: PRECURSOR B-LYMPHOBLASTIC LYMPHOMA
     Dates: start: 20050707, end: 20050819
  2. CYCLOPHOSPHAMIDE [Suspect]
     Indication: PRECURSOR B-LYMPHOBLASTIC LYMPHOMA
     Dates: start: 20050902
  3. MERCAPTOPURINE [Suspect]
     Dates: start: 20050819, end: 20050829
  4. MERCAPTOPURINE [Suspect]
     Dates: start: 20050902
  5. METHOTREXATE [Suspect]
     Dates: start: 20050707, end: 20050714
  6. METHOTREXATE [Suspect]
     Dates: start: 20050902
  7. PEG-L ASPARAGINASE (K-H) [Suspect]
     Dates: start: 20050721, end: 20050902
  8. PEG-L ASPARAGINASE (K-H) [Suspect]
     Dates: start: 20050902
  9. VINCRISTINE SULFATE [Suspect]
     Dates: start: 20050721, end: 20050902
  10. VINCRISTINE SULFATE [Suspect]
     Dates: start: 20050902
  11. SYNTHROID [Concomitant]
  12. PERIDEX [Concomitant]
  13. BACTRIUM [Concomitant]
  14. ZANTAC [Concomitant]
  15. DIFLUCAN [Concomitant]
  16. TYLENOL [Concomitant]
  17. MAGIC MOUTH [Concomitant]
  18. ZOFRAN [Concomitant]
  19. TUMS [Concomitant]

REACTIONS (5)
  - CARDIO-RESPIRATORY ARREST [None]
  - INFECTION [None]
  - NEUTROPHIL COUNT DECREASED [None]
  - PNEUMONIA [None]
  - WOUND [None]
